FAERS Safety Report 14513629 (Version 1)
Quarter: 2018Q1

REPORT INFORMATION
  Report Type: Spontaneous
  Country: US (occurrence: US)
  Receive Date: 20180209
  Receipt Date: 20180209
  Transmission Date: 20180509
  Serious: No
  Sender: FDA-Public Use
  Company Number: US-ALLERGAN-1771557US

PATIENT
  Age: 81 Year
  Sex: Female

DRUGS (3)
  1. FML FORTE [Concomitant]
     Active Substance: FLUOROMETHOLONE
     Indication: DRY EYE
     Dosage: 2 GTT, BID
     Route: 047
  2. LISINOPRIL. [Concomitant]
     Active Substance: LISINOPRIL
     Indication: PRODUCT USED FOR UNKNOWN INDICATION
  3. RESTASIS [Suspect]
     Active Substance: CYCLOSPORINE
     Indication: DRY EYE
     Dosage: 2 GTT, BID
     Route: 047

REACTIONS (2)
  - Accidental exposure to product [Unknown]
  - Product container issue [Unknown]
